FAERS Safety Report 4283146-0 (Version None)
Quarter: 2004Q1

REPORT INFORMATION
  Report Type: 
  Country: None (occurrence: None)
  Receive Date: 20040129
  Receipt Date: 20040116
  Transmission Date: 20041129
  Serious: Yes (Hospitalization, Other)
  Sender: FDA-Public Use
  Company Number: 2003124448

PATIENT
  Age: 71 Year
  Sex: Male
  Weight: 55 kg

DRUGS (13)
  1. LIPITOR [Suspect]
     Indication: HYPERLIPIDAEMIA
     Dosage: 5 MG (DAILY), ORAL
     Route: 048
     Dates: start: 20010516, end: 20031203
  2. BROMAZEPAM (BROMAZEPAM) [Suspect]
     Indication: NEUROSIS
     Dosage: 5 MG DAILY), ORAL
     Route: 048
     Dates: start: 19991208, end: 20031203
  3. ALL OTHER THERAPEUTIC PRODUCTS [Suspect]
  4. SILDENAFIL CITRATE (SILDENAFIL CITRATE) [Concomitant]
  5. NIFEDIPINE [Concomitant]
  6. CERNILTON (CERNITIN T60, CERNITIN GBX) [Concomitant]
  7. ALACEPRIL (ALACEPRIL) [Concomitant]
  8. CAMOSTAT (CAMOSTAT) [Concomitant]
  9. MARZULENE S (LEVOGLUTAMIDE, SODIUM GUALENATE) [Concomitant]
  10. BUFFERIN (ACETYLSALICYLIC ACID, MAGNESIUM CARBONATE, ALUMINIUM GLYCINA [Concomitant]
  11. IFENPRODIL TARTRATE (IFENPRODIL TARTRATE0 [Concomitant]
  12. RANITIDINE HYDROCHLORIDE (RANITIDIEN HYDROCHLORIDE) [Concomitant]
  13. MOSAPRIDE CITRATE (MOSAPRIDE CITRATE) [Concomitant]

REACTIONS (6)
  - ARTHRALGIA [None]
  - BLOOD CHLORIDE INCREASED [None]
  - HYPERLIPIDAEMIA [None]
  - NASOPHARYNGITIS [None]
  - PERIARTHRITIS [None]
  - RHABDOMYOLYSIS [None]
